FAERS Safety Report 8143050-4 (Version None)
Quarter: 2012Q1

REPORT INFORMATION
  Report Type: 
  Country: None (occurrence: None)
  Receive Date: 20120217
  Receipt Date: 20120209
  Transmission Date: 20120608
  Serious: No
  Sender: FDA-Public Use
  Company Number: US-BIOGENIDEC-2012BI005478

PATIENT
  Age: 49 Year
  Sex: Male

DRUGS (1)
  1. TYSABRI [Suspect]
     Indication: MULTIPLE SCLEROSIS
     Route: 042
     Dates: start: 20080227

REACTIONS (5)
  - OROPHARYNGEAL PAIN [None]
  - HYPOAESTHESIA [None]
  - VIIITH NERVE INJURY [None]
  - ASTHENIA [None]
  - LYMPHADENOPATHY [None]
